FAERS Safety Report 25817410 (Version 1)
Quarter: 2025Q3

REPORT INFORMATION
  Report Type: Spontaneous
  Country: EU (occurrence: EU)
  Receive Date: 20250918
  Receipt Date: 20250918
  Transmission Date: 20251021
  Serious: Yes (Death, Other)
  Sender: Atnahs Healthcare
  Company Number: None

PATIENT

DRUGS (6)
  1. DIAZEPAM [Suspect]
     Active Substance: DIAZEPAM
     Indication: Suicide attempt
     Route: 065
  2. CYAMEMAZINE [Suspect]
     Active Substance: CYAMEMAZINE
     Indication: Suicide attempt
     Route: 065
  3. BUPRENORPHINE [Suspect]
     Active Substance: BUPRENORPHINE
     Indication: Suicide attempt
     Route: 065
  4. LYRICA [Suspect]
     Active Substance: PREGABALIN
     Indication: Suicide attempt
     Route: 065
  5. NORDAZEPAM [Suspect]
     Active Substance: NORDAZEPAM
     Indication: Product used for unknown indication
     Route: 065
  6. OXAZEPAM [Suspect]
     Active Substance: OXAZEPAM
     Indication: Suicide attempt
     Route: 065

REACTIONS (2)
  - Completed suicide [Fatal]
  - Overdose [Fatal]
